FAERS Safety Report 7969176-3 (Version None)
Quarter: 2011Q4

REPORT INFORMATION
  Report Type: 
  Country: None (occurrence: None)
  Receive Date: 20111209
  Receipt Date: 20111207
  Transmission Date: 20120403
  Serious: Yes (Hospitalization, Other)
  Sender: FDA-Public Use
  Company Number: US-PFIZER INC-2011298863

PATIENT
  Sex: Female

DRUGS (6)
  1. AMBIEN [Suspect]
     Dosage: UNK
  2. SEROQUEL [Suspect]
     Dosage: UNK
  3. OXYCODONE HCL [Suspect]
     Dosage: UNK
  4. PERCOCET [Suspect]
     Dosage: UNK
  5. SYMBICORT [Suspect]
     Dosage: UNK
  6. XANAX [Suspect]
     Dosage: UNK

REACTIONS (8)
  - CHRONIC OBSTRUCTIVE PULMONARY DISEASE [None]
  - PAIN [None]
  - MENTAL DISORDER [None]
  - SOMNOLENCE [None]
  - CONVULSION [None]
  - HYPOXIA [None]
  - PNEUMONIA [None]
  - ATELECTASIS [None]
